FAERS Safety Report 6479970-6 (Version None)
Quarter: 2009Q4

REPORT INFORMATION
  Report Type: 
  Country: None (occurrence: None)
  Receive Date: 20091208
  Receipt Date: 20091125
  Transmission Date: 20100525
  Serious: Yes (Hospitalization)
  Sender: FDA-Public Use
  Company Number: JP-SANOFI-AVENTIS-2009SA004642

PATIENT
  Age: 87 Year
  Sex: Male
  Weight: 54 kg

DRUGS (18)
  1. PLAVIX [Suspect]
     Indication: ANGINA UNSTABLE
     Route: 048
     Dates: start: 20081004, end: 20081004
  2. PLAVIX [Suspect]
     Route: 048
     Dates: start: 20081005
  3. ASPIRIN [Concomitant]
     Indication: ANGINA UNSTABLE
     Route: 048
     Dates: start: 20081004
  4. ASPIRIN [Concomitant]
     Route: 048
     Dates: start: 20081105, end: 20090218
  5. ASPIRIN [Concomitant]
     Route: 048
     Dates: start: 20090219, end: 20091004
  6. ASPIRIN [Concomitant]
     Route: 048
     Dates: start: 20091005
  7. LONGES [Concomitant]
     Indication: ANGINA UNSTABLE
     Route: 048
     Dates: start: 20081005, end: 20090415
  8. LONGES [Concomitant]
     Route: 048
     Dates: start: 20090416
  9. LIPITOR [Concomitant]
     Indication: ANGINA UNSTABLE
     Route: 048
     Dates: start: 20081005, end: 20081022
  10. LIPITOR [Concomitant]
     Route: 048
     Dates: start: 20081023
  11. GASTER D [Concomitant]
     Indication: GASTRITIS
     Route: 048
     Dates: start: 20081005, end: 20090415
  12. GASTER D [Concomitant]
     Route: 048
     Dates: start: 20090416
  13. DEPAS [Concomitant]
     Indication: INSOMNIA
     Route: 048
     Dates: start: 20081005, end: 20090813
  14. SENNOSIDE A+B [Concomitant]
     Indication: CONSTIPATION
     Route: 048
     Dates: start: 20081005, end: 20090813
  15. FRANDOL [Concomitant]
     Indication: ANGINA UNSTABLE
     Route: 062
     Dates: start: 20081007, end: 20090415
  16. LONGES [Concomitant]
     Route: 048
     Dates: start: 20090416
  17. HARNAL [Concomitant]
     Indication: NEUROGENIC BLADDER
     Route: 048
     Dates: start: 20091029
  18. BESACOLIN [Concomitant]
     Indication: NEUROGENIC BLADDER
     Route: 048
     Dates: start: 20091029

REACTIONS (4)
  - ANGINA PECTORIS [None]
  - CHOLECYSTITIS [None]
  - PSEUDOMEMBRANOUS COLITIS [None]
  - URINARY TRACT INFECTION [None]
